FAERS Safety Report 4662403-X (Version None)
Quarter: 2005Q2

REPORT INFORMATION
  Report Type: 
  Country: None (occurrence: None)
  Receive Date: 20050512
  Receipt Date: 20050504
  Transmission Date: 20051028
  Serious: Yes (Death, Hospitalization, Other)
  Sender: FDA-Public Use
  Company Number: 2005-05-0124

PATIENT
  Age: 51 Year
  Sex: Male

DRUGS (2)
  1. REBETOL [Suspect]
     Indication: HEPATITIS C
     Dosage: ORAL
     Route: 048
  2. PEGASYS [Concomitant]

REACTIONS (13)
  - ALCOHOLISM [None]
  - ARTERIAL HAEMORRHAGE [None]
  - CARDIAC ARREST [None]
  - DIALYSIS [None]
  - ENDOCARDITIS [None]
  - HAEMOGLOBIN DECREASED [None]
  - HEPATIC CIRRHOSIS [None]
  - INTRA-ABDOMINAL HAEMORRHAGE [None]
  - LIVER DISORDER [None]
  - PANCREATITIS NECROTISING [None]
  - POST PROCEDURAL COMPLICATION [None]
  - RENAL FAILURE ACUTE [None]
  - SHOCK HAEMORRHAGIC [None]
